FAERS Safety Report 6232170-7 (Version None)
Quarter: 2009Q2

REPORT INFORMATION
  Report Type: 
  Country: None (occurrence: None)
  Receive Date: 20090617
  Receipt Date: 20090603
  Transmission Date: 20091009
  Serious: Yes (Hospitalization, Other)
  Sender: FDA-Public Use
  Company Number: SG-RANBAXY-2009RR-24734

PATIENT
  Age: 75 Year
  Sex: Female

DRUGS (2)
  1. AMOXICILLIN [Suspect]
  2. ALLOPURINOL [Suspect]
     Indication: GOUT

REACTIONS (4)
  - SKIN INFECTION [None]
  - STEVENS-JOHNSON SYNDROME [None]
  - TOXIC EPIDERMAL NECROLYSIS [None]
  - URINARY TRACT INFECTION [None]
